FAERS Safety Report 8759095 (Version 1)
Quarter: 2012Q4

REPORT INFORMATION
  Report Type: 
  Country: JP (occurrence: JP)
  Receive Date: 20120829
  Receipt Date: 20120829
  Transmission Date: 20130627
  Serious: Yes (Other)
  Sender: FDA-Public Use
  Company Number: JP-ABBOTT-12P-087-0922703-00

PATIENT
  Age: 30 Year
  Sex: Male
  Weight: 78 kg

DRUGS (8)
  1. HUMIRA 40 MG/ 0.8 ML PRE-FILLED SYRINGE [Suspect]
     Indication: CROHN^S DISEASE
     Route: 058
     Dates: start: 20110805, end: 20110805
  2. HUMIRA 40 MG/ 0.8 ML PRE-FILLED SYRINGE [Suspect]
     Dates: start: 20110819, end: 20110819
  3. HUMIRA 40 MG/ 0.8 ML PRE-FILLED SYRINGE [Suspect]
     Dates: start: 20110902, end: 20120210
  4. SALAZOSULFAPYRIDINE [Concomitant]
     Indication: CROHN^S DISEASE
     Dosage: 4 grams daily
     Route: 048
  5. ISONIAZID [Concomitant]
     Indication: ANTIBIOTIC PROPHYLAXIS
     Dosage: 300 mg daily
     Route: 048
     Dates: start: 20110722
  6. PYRIDOXAL PHOSPHATE HYDRATE [Concomitant]
     Indication: HYPERURICAEMIA
     Dosage: 60 mg daily
     Route: 048
  7. BENZBROMARONE [Concomitant]
     Indication: HYPERURICAEMIA
     Route: 048
     Dates: start: 20110805
  8. VARENICLINE TARTRATE [Concomitant]
     Indication: SMOKING CESSATION THERAPY
     Dates: start: 20111216, end: 20120216

REACTIONS (3)
  - Palmar-plantar erythrodysaesthesia syndrome [Recovering/Resolving]
  - Atopy [Recovering/Resolving]
  - Folliculitis [Recovered/Resolved]
